FAERS Safety Report 8980487 (Version 8)
Quarter: 2013Q3

REPORT INFORMATION
  Report Type: Report from Study
  Country: CA (occurrence: CA)
  Receive Date: 20121221
  Receipt Date: 20130823
  Transmission Date: 20140515
  Serious: Yes (Hospitalization, Other)
  Sender: FDA-Public Use
  Company Number: PHHY2012CA117568

PATIENT
  Age: 62 Year
  Sex: Female

DRUGS (4)
  1. GLEEVEC [Suspect]
     Indication: GASTROINTESTINAL STROMAL TUMOUR
     Dosage: 400 MG, QD
     Route: 048
     Dates: start: 20100818, end: 20130711
  2. GLEEVEC [Suspect]
     Dosage: 400 MG, QD
     Route: 048
     Dates: start: 20130726
  3. FOSAMAX [Concomitant]
  4. VITAMIN D [Concomitant]
     Dosage: UNK UKN, BID

REACTIONS (18)
  - Asthma [Recovering/Resolving]
  - Dyspnoea [Recovering/Resolving]
  - Lung infection [Unknown]
  - Pyrexia [Recovered/Resolved]
  - Urinary bladder haemorrhage [Recovered/Resolved]
  - Secretion discharge [Not Recovered/Not Resolved]
  - Urinary tract infection [Unknown]
  - Dysuria [Unknown]
  - Pollakiuria [Unknown]
  - Haematuria [Not Recovered/Not Resolved]
  - Cystitis radiation [Unknown]
  - Haemorrhage urinary tract [Not Recovered/Not Resolved]
  - Lung disorder [Unknown]
  - White blood cell count decreased [Unknown]
  - Pain in extremity [Recovering/Resolving]
  - Fluid retention [Unknown]
  - Arthritis [Unknown]
  - Anaemia [Unknown]
